FAERS Safety Report 7900349-1 (Version None)
Quarter: 2011Q4

REPORT INFORMATION
  Report Type: 
  Country: None (occurrence: None)
  Receive Date: 20111108
  Receipt Date: 20111103
  Transmission Date: 20120403
  Serious: No
  Sender: FDA-Public Use
  Company Number: US-PFIZER INC-2011269791

PATIENT
  Sex: Male

DRUGS (3)
  1. ZOLOFT [Suspect]
     Dosage: 50 MG
  2. ZOLOFT [Suspect]
     Dosage: UNK
     Dates: end: 20111103
  3. ZOLOFT [Suspect]
     Dosage: 25 MG

REACTIONS (2)
  - ANXIETY [None]
  - FEELING ABNORMAL [None]
